FAERS Safety Report 4881801-2 (Version None)
Quarter: 2006Q1

REPORT INFORMATION
  Report Type: 
  Country: None (occurrence: None)
  Receive Date: 20060117
  Receipt Date: 20060103
  Transmission Date: 20060701
  Serious: Yes (Hospitalization)
  Sender: FDA-Public Use
  Company Number: AU-NOVOPROD-249748

PATIENT
  Age: 65 Year
  Sex: Female

DRUGS (3)
  1. MIXTARD HUMAN 70/30 [Suspect]
     Indication: DIABETES MELLITUS INSULIN-DEPENDENT
     Route: 058
     Dates: start: 20040201
  2. DIAMICRON [Concomitant]
     Route: 048
  3. DIAFORMIN [Concomitant]
     Route: 048

REACTIONS (2)
  - COMA [None]
  - LACTIC ACIDOSIS [None]
